FAERS Safety Report 4610880-2 (Version None)
Quarter: 2005Q2

REPORT INFORMATION
  Report Type: 
  Country: None (occurrence: None)
  Receive Date: 20050301
  Receipt Date: 20040224
  Transmission Date: 20051028
  Serious: Yes (Disabling)
  Sender: FDA-Public Use
  Company Number: MYAM000002

PATIENT
  Age: 36 Year
  Sex: Male

DRUGS (3)
  1. MYAMBUTOL [Suspect]
     Dosage: UNK ORAL
     Route: 048
     Dates: start: 20010127, end: 20010609
  2. ISONIAZID [Concomitant]
  3. RIFAMPICIN [Concomitant]

REACTIONS (1)
  - VISUAL DISTURBANCE [None]
